FAERS Safety Report 24417917 (Version 1)
Quarter: 2024Q4

REPORT INFORMATION
  Report Type: Spontaneous
  Country: US (occurrence: None)
  Receive Date: 20241009
  Receipt Date: 20241009
  Transmission Date: 20250114
  Serious: Yes (unspecified)
  Sender: Public
  Company Number: None

PATIENT
  Age: 81 Year
  Sex: Male
  Weight: 87.75 kg

DRUGS (3)
  1. CLOTRIMAZOLE AND BETAMETHASONE DIPROPIONATE [Suspect]
     Active Substance: BETAMETHASONE\BETAMETHASONE DIPROPIONATE\CLOTRIMAZOLE
     Indication: Skin papilloma
     Dosage: FREQUENCY : TWICE A DAY;?
     Route: 061
     Dates: start: 20240930, end: 20241004
  2. CEPHALEXIN [Concomitant]
     Active Substance: CEPHALEXIN
  3. multi vitamin capsules [Concomitant]

REACTIONS (4)
  - Pyrexia [None]
  - Erythema [None]
  - Swelling face [None]
  - Therapy cessation [None]

NARRATIVE: CASE EVENT DATE: 20241008
